FAERS Safety Report 13234401 (Version 1)
Quarter: 2017Q1

REPORT INFORMATION
  Report Type: Spontaneous
  Country: US (occurrence: US)
  Receive Date: 20170215
  Receipt Date: 20170215
  Transmission Date: 20170428
  Serious: Yes (Other)
  Sender: FDA-Public Use
  Company Number: US-LUPIN PHARMACEUTICALS INC.-E2B_00007342

PATIENT
  Age: 40 Year
  Sex: Female
  Weight: 135.29 kg

DRUGS (5)
  1. MELOXICAM TABLETS USP 15MG [Suspect]
     Active Substance: MELOXICAM
     Indication: MUSCULOSKELETAL PAIN
     Route: 048
  2. ZIPRASIDONE HYDROCHLORIDE CAPSULES 40 MG [Suspect]
     Active Substance: ZIPRASIDONE
     Indication: BIPOLAR DISORDER
     Route: 048
  3. LISINOPRIL AND HYDROCHLOROTHIAZIDE [Suspect]
     Active Substance: HYDROCHLOROTHIAZIDE\LISINOPRIL
     Indication: HYPERTENSION
     Route: 048
  4. ZIPRASIDONE HYDROCHLORIDE CAPSULES 80 MG [Suspect]
     Active Substance: ZIPRASIDONE HYDROCHLORIDE
     Indication: BIPOLAR DISORDER
     Route: 048
  5. MELOXICAM TABLETS USP 15MG [Suspect]
     Active Substance: MELOXICAM
     Indication: ARTHRITIS

REACTIONS (1)
  - Coeliac disease [Not Recovered/Not Resolved]

NARRATIVE: CASE EVENT DATE: 201601
